FAERS Safety Report 26071735 (Version 1)
Quarter: 2025Q4

REPORT INFORMATION
  Report Type: Spontaneous
  Country: CL (occurrence: CL)
  Receive Date: 20251120
  Receipt Date: 20251120
  Transmission Date: 20260118
  Serious: Yes (Other)
  Sender: TEVA
  Company Number: CL-TEVA-VS-3387030

PATIENT
  Age: 54 Year
  Sex: Female
  Weight: 74 kg

DRUGS (3)
  1. BETAMETHASONE [Suspect]
     Active Substance: BETAMETHASONE
     Indication: Rotator cuff syndrome
     Dosage: 1 VIAL; (MICRONIZED BETAMETHASONE ACETATE 300 MG, BETAMETHASONE SODIUM PHOSPHATE (EQUIVALENT TO 3...
     Route: 058
     Dates: start: 20251021
  2. INSULIN NOS [Concomitant]
     Active Substance: INSULIN NOS
     Indication: Type 2 diabetes mellitus
  3. TRULICITY [Concomitant]
     Active Substance: DULAGLUTIDE
     Indication: Type 2 diabetes mellitus

REACTIONS (1)
  - Blood glucose increased [Not Recovered/Not Resolved]

NARRATIVE: CASE EVENT DATE: 20251001
